FAERS Safety Report 9907601 (Version 2)
Quarter: 2015Q4

REPORT INFORMATION
  Report Type: Report from Study
  Country: US (occurrence: US)
  Receive Date: 20140219
  Receipt Date: 20151104
  Transmission Date: 20160305
  Serious: Yes (Other)
  Sender: FDA-Public Use
  Company Number: US-ROCHE-1331566

PATIENT
  Age: 69 Year
  Sex: Female

DRUGS (8)
  1. PRESERVISION AREDS [Concomitant]
     Active Substance: MINERALS\VITAMINS
  2. ALEVE [Concomitant]
     Active Substance: NAPROXEN SODIUM
  3. CORTISONE [Concomitant]
     Active Substance: CORTISONE\HYDROCORTISONE
  4. LUCENTIS [Suspect]
     Active Substance: RANIBIZUMAB
     Indication: NEOVASCULAR AGE-RELATED MACULAR DEGENERATION
     Dosage: BOTH EYES
     Route: 050
  5. TROPICAMIDE. [Concomitant]
     Active Substance: TROPICAMIDE
     Route: 065
  6. AVASTIN [Suspect]
     Active Substance: BEVACIZUMAB
     Indication: PRODUCT USED FOR UNKNOWN INDICATION
     Route: 050
  7. CYCLOGYL [Concomitant]
     Active Substance: CYCLOPENTOLATE HYDROCHLORIDE
     Route: 065
  8. PHENYLEPHRINE [Concomitant]
     Active Substance: PHENYLEPHRINE\PHENYLEPHRINE HYDROCHLORIDE
     Route: 065

REACTIONS (8)
  - Cataract [Unknown]
  - Macular oedema [Unknown]
  - Retinal scar [Unknown]
  - Arthralgia [Unknown]
  - Ophthalmological examination abnormal [Unknown]
  - Vision blurred [Unknown]
  - Visual field defect [Unknown]
  - Retinal haemorrhage [Unknown]

NARRATIVE: CASE EVENT DATE: 20130304
